FAERS Safety Report 9356385 (Version 1)
Quarter: 2013Q2

REPORT INFORMATION
  Report Type: Spontaneous
  Country: US (occurrence: US)
  Receive Date: 20130619
  Receipt Date: 20130619
  Transmission Date: 20140414
  Serious: No
  Sender: FDA-Public Use
  Company Number: US-009507513-1305USA017318

PATIENT
  Sex: Female

DRUGS (1)
  1. CLARITIN [Suspect]
     Indication: ALLERGIC SINUSITIS
     Dosage: UNK, UNKNOWN
     Route: 048

REACTIONS (2)
  - Asthenia [Unknown]
  - Fatigue [Unknown]
